FAERS Safety Report 4330412-6 (Version None)
Quarter: 2004Q1

REPORT INFORMATION
  Report Type: 
  Country: None (occurrence: None)
  Receive Date: 20040330
  Receipt Date: 20040324
  Transmission Date: 20041129
  Serious: Yes (Life-Threatening, Hospitalization)
  Sender: FDA-Public Use
  Company Number: A044-002-004929

PATIENT
  Age: 83 Year
  Sex: Female

DRUGS (2)
  1. ARICEPT [Suspect]
     Indication: SENILE DEMENTIA
     Dosage: 5 MG, 1 IN 1 D, ORAL
     Route: 048
     Dates: start: 20031106, end: 20031111
  2. FOTIL FORTE (PILOCARDPINE HYDROCHLORIDE/TIMOLOL MALEATE) [Suspect]
     Dosage: OPTHALMIC
     Route: 047

REACTIONS (3)
  - ATRIAL FIBRILLATION [None]
  - SINUS ARREST [None]
  - SYNCOPE [None]
